FAERS Safety Report 15639684 (Version 2)
Quarter: 2018Q4

REPORT INFORMATION
  Report Type: Other
  Country: US (occurrence: US)
  Receive Date: 20181120
  Receipt Date: 20181214
  Transmission Date: 20190205
  Serious: Yes (Death)
  Sender: FDA-Public Use
  Company Number: US-INTERCEPT-PMOCA2018001835

PATIENT

DRUGS (1)
  1. OCALIVA [Suspect]
     Active Substance: OBETICHOLIC ACID
     Dosage: UNK

REACTIONS (3)
  - Renal failure [Fatal]
  - Blood disorder [Fatal]
  - Hepatic failure [Fatal]

NARRATIVE: CASE EVENT DATE: 2018
